FAERS Safety Report 8736844 (Version 2)
Quarter: 2012Q4

REPORT INFORMATION
  Report Type: 
  Country: US (occurrence: US)
  Receive Date: 20120822
  Receipt Date: 20120919
  Transmission Date: 20130627
  Serious: Yes (Hospitalization, Other)
  Sender: FDA-Public Use
  Company Number: US-PFIZER INC-2012201885

PATIENT
  Age: 25 Year
  Sex: Male
  Weight: 80.27 kg

DRUGS (5)
  1. XYNTHA [Suspect]
     Indication: FACTOR VIII DEFICIENCY
     Dosage: 25 IU/kg, every 12-24 hours as needed
     Dates: start: 20090422, end: 20120604
  2. OXYCODONE [Concomitant]
     Indication: PAIN
     Dosage: UNK
  3. TYLENOL [Concomitant]
     Indication: PAIN
     Dosage: UNK
  4. GLUCOSAMINE [Concomitant]
     Dosage: UNK
  5. CHONDROITIN [Concomitant]
     Dosage: UNK

REACTIONS (4)
  - Muscle haemorrhage [Unknown]
  - Haemorrhage [Unknown]
  - Muscle haemorrhage [Unknown]
  - Factor VIII inhibition [Recovering/Resolving]
